FAERS Safety Report 24183187 (Version 1)
Quarter: 2024Q3

REPORT INFORMATION
  Report Type: Other
  Country: AR (occurrence: AR)
  Receive Date: 20240807
  Receipt Date: 20240807
  Transmission Date: 20241016
  Serious: Yes (Hospitalization)
  Sender: ORBION PHARMACEUTICALS
  Company Number: AR-OrBion Pharmaceuticals Private Limited-2160097

PATIENT
  Age: 43 Year
  Sex: Male

DRUGS (2)
  1. ROPINIROLE HYDROCHLORIDE [Suspect]
     Active Substance: ROPINIROLE HYDROCHLORIDE
     Indication: Parkinson^s disease
     Route: 065
  2. RASAGILINE [Suspect]
     Active Substance: RASAGILINE\RASAGILINE MESYLATE
     Route: 065

REACTIONS (4)
  - Intentional product misuse [Unknown]
  - Intentional overdose [Unknown]
  - Dopamine agonist withdrawal syndrome [Unknown]
  - Impulse-control disorder [Unknown]
